FAERS Safety Report 7785318-7 (Version None)
Quarter: 2011Q3

REPORT INFORMATION
  Report Type: 
  Country: None (occurrence: None)
  Receive Date: 20110929
  Receipt Date: 20110924
  Transmission Date: 20111222
  Serious: No
  Sender: FDA-Public Use
  Company Number: US-PFIZER INC-2011228526

PATIENT
  Sex: Female
  Weight: 79.37 kg

DRUGS (5)
  1. EFFEXOR XR [Suspect]
     Indication: ANXIETY
     Dosage: 150 MG, DAILY
     Route: 048
     Dates: start: 20090101
  2. AMBIEN [Concomitant]
     Indication: SLEEP DISORDER
     Dosage: 10 MG, DAILY
     Route: 048
  3. TRAZODONE HCL [Suspect]
     Indication: ANXIETY
  4. EFFEXOR XR [Suspect]
     Indication: DEPRESSION
     Dosage: 150 MG, DAILY
     Route: 048
     Dates: start: 20000101
  5. TRAZODONE HCL [Suspect]
     Indication: DEPRESSION
     Dosage: 150 MG, DAILY
     Route: 048
     Dates: start: 20110910, end: 20110914

REACTIONS (7)
  - DYSPNOEA [None]
  - TINNITUS [None]
  - BALANCE DISORDER [None]
  - WITHDRAWAL SYNDROME [None]
  - ANXIETY [None]
  - DEPRESSION [None]
  - DIZZINESS [None]
